FAERS Safety Report 9380348 (Version 1)
Quarter: 2013Q3

REPORT INFORMATION
  Report Type: Spontaneous
  Country: GB (occurrence: GB)
  Receive Date: 20130702
  Receipt Date: 20130702
  Transmission Date: 20140515
  Serious: Yes (Other)
  Sender: FDA-Public Use
  Company Number: GB-GLAXOSMITHKLINE-B0617075A

PATIENT
  Age: 17 Year
  Sex: Male

DRUGS (19)
  1. RITUXIMAB [Suspect]
     Indication: BURKITT^S LYMPHOMA
     Route: 065
  2. DOXORUBICIN [Suspect]
     Indication: BURKITT^S LYMPHOMA
     Route: 065
  3. VINCRISTINE [Suspect]
     Indication: BURKITT^S LYMPHOMA
     Route: 065
  4. PREDNISOLONE [Suspect]
     Indication: BURKITT^S LYMPHOMA
     Route: 065
  5. ARA-C [Suspect]
     Indication: BURKITT^S LYMPHOMA
     Route: 065
  6. VP-16 [Suspect]
     Indication: BURKITT^S LYMPHOMA
     Route: 065
  7. 6-THIOGUANINE [Suspect]
     Indication: BURKITT^S LYMPHOMA
     Route: 065
  8. 6-MERCAPTOPURINE [Suspect]
     Indication: BURKITT^S LYMPHOMA
     Route: 065
  9. METHOTREXATE [Suspect]
     Indication: BURKITT^S LYMPHOMA
     Route: 037
  10. TACROLIMUS [Suspect]
     Indication: IMMUNOSUPPRESSION
     Route: 065
  11. TACROLIMUS [Suspect]
     Indication: IMMUNOSUPPRESSION
     Route: 065
  12. ACYCLOVIR [Suspect]
     Indication: PROPHYLAXIS
     Route: 065
  13. CO-TRIMOXAZOLE [Suspect]
     Indication: PROPHYLAXIS
     Route: 065
  14. ITRACONAZOLE [Suspect]
     Indication: PROPHYLAXIS
     Route: 065
  15. DEXRAZOXANE [Suspect]
     Indication: PRODUCT USED FOR UNKNOWN INDICATION
     Route: 065
  16. CAELYX [Suspect]
  17. CYCLOPHOSPHAMIDE [Concomitant]
  18. ONCOVIN [Concomitant]
  19. PREDNISONE [Concomitant]

REACTIONS (4)
  - Neutropenia [Unknown]
  - Renal impairment [Unknown]
  - Epstein-Barr viraemia [Unknown]
  - Lymphoproliferative disorder [Unknown]
